FAERS Safety Report 8985111 (Version 1)
Quarter: 2012Q4

REPORT INFORMATION
  Report Type: 
  Country: FR (occurrence: FR)
  Receive Date: 20121226
  Receipt Date: 20121226
  Transmission Date: 20130627
  Serious: Yes (Hospitalization)
  Sender: FDA-Public Use
  Company Number: PHHY2012FR118742

PATIENT
  Age: 51 Year
  Sex: Male
  Weight: 82 kg

DRUGS (11)
  1. NILOTINIB [Suspect]
     Indication: CHRONIC MYELOID LEUKAEMIA
     Dosage: 400 mg, BID
     Route: 048
     Dates: start: 20110428, end: 20120511
  2. NOVORAPID [Concomitant]
     Indication: DIABETES MELLITUS
     Dosage: UNK
     Route: 058
     Dates: start: 201104
  3. LEVEMIR [Concomitant]
     Indication: DIABETES MELLITUS
     Dosage: UNK
     Route: 058
     Dates: start: 201104
  4. LASILIX [Concomitant]
     Indication: MYOCARDIAL ISCHAEMIA
     Dosage: 60 mg, UNK
     Route: 048
     Dates: start: 201104
  5. SPRYCEL [Concomitant]
     Indication: CHRONIC MYELOID LEUKAEMIA
     Dosage: 80 mg, UNK
     Route: 048
     Dates: start: 20110512
  6. TRIATEC [Concomitant]
     Indication: MYOCARDIAL ISCHAEMIA
     Dosage: 1.25 mg, UNK
     Route: 048
     Dates: start: 201104
  7. PLAVIX [Concomitant]
     Indication: MYOCARDIAL ISCHAEMIA
     Dosage: 75 mg, UNK
     Route: 048
  8. KARDEGIC [Concomitant]
     Indication: MYOCARDIAL ISCHAEMIA
     Dosage: 160 mg, UNK
     Route: 048
  9. LYRICA [Concomitant]
     Dosage: 160 mg, UNK
     Route: 048
  10. BINOCRIT [Concomitant]
  11. TAHOR [Concomitant]
     Indication: MYOCARDIAL ISCHAEMIA
     Dosage: 40 mg, UNK
     Route: 048

REACTIONS (7)
  - Peripheral arterial occlusive disease [Unknown]
  - Peripheral artery stenosis [Unknown]
  - Pulse absent [Unknown]
  - Intermittent claudication [Not Recovered/Not Resolved]
  - Pain in extremity [Unknown]
  - Skin ulcer [Unknown]
  - Drug resistance [Unknown]
